FAERS Safety Report 10867179 (Version 1)
Quarter: 2015Q1

REPORT INFORMATION
  Report Type: Spontaneous
  Country: US (occurrence: US)
  Receive Date: 20150225
  Receipt Date: 20150225
  Transmission Date: 20150721
  Serious: Yes (Other)
  Sender: FDA-Public Use
  Company Number: US-RB-073325-15

PATIENT
  Age: 59 Year
  Sex: Female

DRUGS (1)
  1. MUCINEX FULL FORCE [Suspect]
     Active Substance: OXYMETAZOLINE HYDROCHLORIDE
     Indication: PRODUCT USED FOR UNKNOWN INDICATION
     Dosage: TOOK 1 TIME;  LAST USED THE PRODUCT ON 11-FEB-2015
     Route: 065
     Dates: start: 20150211

REACTIONS (1)
  - Blood glucose increased [Not Recovered/Not Resolved]

NARRATIVE: CASE EVENT DATE: 20150211
